FAERS Safety Report 8420425-7 (Version None)
Quarter: 2012Q2

REPORT INFORMATION
  Report Type: 
  Country: None (occurrence: None)
  Receive Date: 20120607
  Receipt Date: 20120530
  Transmission Date: 20120825
  Serious: Yes (Disabling, Other)
  Sender: FDA-Public Use
  Company Number: US-TEVA-340648USA

PATIENT
  Sex: Female

DRUGS (2)
  1. COPAXONE [Suspect]
     Indication: MULTIPLE SCLEROSIS
     Dosage: 20 MILLIGRAM;
     Route: 058
  2. BACLOFEN [Concomitant]

REACTIONS (10)
  - SCAR [None]
  - OROPHARYNGEAL PAIN [None]
  - CANDIDIASIS [None]
  - INJECTION SITE REACTION [None]
  - DYSPHAGIA [None]
  - PHARYNGEAL OEDEMA [None]
  - PAIN IN JAW [None]
  - INJECTION SITE INFECTION [None]
  - HYPOPHAGIA [None]
  - MASS [None]
